FAERS Safety Report 26100928 (Version 1)
Quarter: 2025Q4

REPORT INFORMATION
  Report Type: Spontaneous
  Country: IL (occurrence: IL)
  Receive Date: 20251128
  Receipt Date: 20251128
  Transmission Date: 20260117
  Serious: Yes (Death)
  Sender: AMGEN
  Company Number: IL-AMGEN-ISRSP2025231876

PATIENT

DRUGS (1)
  1. PROLIA [Suspect]
     Active Substance: DENOSUMAB
     Indication: Osteoporosis
     Dosage: UNK
     Route: 065

REACTIONS (5)
  - Death [Fatal]
  - Bone density decreased [Unknown]
  - Glomerular filtration rate decreased [Unknown]
  - Fall [Unknown]
  - Fracture [Unknown]
